FAERS Safety Report 9877307 (Version 1)
Quarter: 2014Q1

REPORT INFORMATION
  Report Type: Spontaneous
  Country: US (occurrence: US)
  Receive Date: 20140206
  Receipt Date: 20140206
  Transmission Date: 20141002
  Serious: Yes (Other)
  Sender: FDA-Public Use
  Company Number: US-ASTRAZENECA-2014SE06901

PATIENT
  Age: 43 Year
  Sex: Female
  Weight: 99.8 kg

DRUGS (9)
  1. NEXIUM [Suspect]
     Indication: DYSPEPSIA
     Route: 048
     Dates: start: 2004
  2. LISINOPRIL [Suspect]
     Indication: HYPERTENSION
     Route: 048
     Dates: start: 2008
  3. PRILOSEC [Suspect]
     Indication: DYSPEPSIA
     Route: 048
     Dates: start: 1994, end: 2004
  4. PREDNISONE [Concomitant]
     Indication: HORMONE REPLACEMENT THERAPY
     Route: 048
     Dates: start: 1979
  5. PREDNISONE [Concomitant]
     Indication: HORMONE REPLACEMENT THERAPY
     Route: 048
     Dates: start: 1979
  6. SYNTHROID [Concomitant]
     Indication: HORMONE REPLACEMENT THERAPY
     Dosage: DAILY
     Route: 048
     Dates: start: 1979
  7. NORVASC [Concomitant]
     Indication: BLOOD PRESSURE ABNORMAL
     Route: 048
     Dates: start: 2008
  8. PAXIL [Concomitant]
     Indication: NERVOUSNESS
     Route: 048
     Dates: start: 1984
  9. PAXIL [Concomitant]
     Indication: DEPRESSION
     Route: 048
     Dates: start: 1984

REACTIONS (8)
  - Deep vein thrombosis [Unknown]
  - Pulmonary embolism [Unknown]
  - Abdominal abscess [Unknown]
  - Adverse event [Unknown]
  - Staphylococcal infection [Unknown]
  - Hypertension [Unknown]
  - Off label use [Unknown]
  - Drug dose omission [Unknown]
